FAERS Safety Report 25815740 (Version 2)
Quarter: 2025Q4

REPORT INFORMATION
  Report Type: Spontaneous
  Country: US (occurrence: US)
  Receive Date: 20250918
  Receipt Date: 20251030
  Transmission Date: 20260118
  Serious: No
  Sender: BRISTOL-MYERS SQUIBB COMPANY
  Company Number: US-BRISTOL-MYERS SQUIBB COMPANY-2025-128525

PATIENT
  Age: 65 Year
  Sex: Female

DRUGS (1)
  1. POMALYST [Suspect]
     Active Substance: POMALIDOMIDE
     Indication: Plasma cell myeloma
     Dosage: TAKE 1 CAPSULE BY MOUTH 1 TIME A DAY FOR 21 DAYS. TAKE AT ABOUT THE SAME TIME EACH DAY.
     Route: 048
     Dates: start: 202111

REACTIONS (4)
  - White blood cell count decreased [Unknown]
  - Rash pruritic [Unknown]
  - Coordination abnormal [Unknown]
  - Brain fog [Unknown]
